FAERS Safety Report 8042185-4 (Version None)
Quarter: 2012Q1

REPORT INFORMATION
  Report Type: 
  Country: None (occurrence: None)
  Receive Date: 20120112
  Receipt Date: 20111228
  Transmission Date: 20120608
  Serious: Yes (Death)
  Sender: FDA-Public Use
  Company Number: US-UCBSA-049199

PATIENT
  Age: 43 Year
  Sex: Male

DRUGS (5)
  1. QUETIAPINE [Suspect]
  2. BENZODIAZEPINE [Suspect]
  3. ALPRAZOLAM [Suspect]
  4. IMIPRAMINE [Suspect]
  5. METHADONE HCL [Suspect]

REACTIONS (1)
  - COMPLETED SUICIDE [None]
